FAERS Safety Report 16031291 (Version 1)
Quarter: 2019Q1

REPORT INFORMATION
  Report Type: Report from Study
  Country: US (occurrence: US)
  Receive Date: 20190304
  Receipt Date: 20190304
  Transmission Date: 20190418
  Serious: No
  Sender: FDA-Public Use
  Company Number: US-INCYTE CORPORATION-2019IN000596

PATIENT

DRUGS (1)
  1. JAKAFI [Suspect]
     Active Substance: RUXOLITINIB
     Indication: MYELOFIBROSIS
     Dosage: 25 MG, BID
     Route: 048
     Dates: start: 20170208

REACTIONS (5)
  - Post-traumatic pain [Unknown]
  - Fall [Unknown]
  - Product dose omission [Unknown]
  - Contusion [Unknown]
  - Back injury [Unknown]

NARRATIVE: CASE EVENT DATE: 20190117
